FAERS Safety Report 9283688 (Version 1)
Quarter: 2013Q2

REPORT INFORMATION
  Report Type: Spontaneous
  Country: CA (occurrence: CA)
  Receive Date: 20130510
  Receipt Date: 20130510
  Transmission Date: 20140414
  Serious: Yes (Death)
  Sender: FDA-Public Use
  Company Number: CA-GLAXOSMITHKLINE-A1022703A

PATIENT
  Sex: Female

DRUGS (18)
  1. VOTRIENT [Suspect]
     Indication: RENAL CANCER METASTATIC
     Dosage: 800MG PER DAY
     Route: 048
     Dates: start: 20130201
  2. METOCLOPRAMIDE [Concomitant]
  3. BISOPROLOL [Concomitant]
  4. VALSARTAN [Concomitant]
  5. NABILONE [Concomitant]
  6. ASPIRIN [Concomitant]
  7. CITALOPRAM [Concomitant]
  8. RABEPRAZOLE [Concomitant]
  9. VITAMIN D [Concomitant]
  10. CRESTOR [Concomitant]
  11. B-12 [Concomitant]
  12. SYNTHROID [Concomitant]
  13. NIFEDIPINE [Concomitant]
  14. SULCRATE [Concomitant]
  15. SENOKOT [Concomitant]
  16. PROCHLORPERAZINE [Concomitant]
  17. PREMARIN VAGINAL CREAM [Concomitant]
  18. NYSTATIN [Concomitant]

REACTIONS (2)
  - Death [Fatal]
  - Malaise [Unknown]
